FAERS Safety Report 10982287 (Version 1)
Quarter: 2015Q2

REPORT INFORMATION
  Report Type: Spontaneous
  Country: GB (occurrence: GB)
  Receive Date: 20150403
  Receipt Date: 20150403
  Transmission Date: 20150821
  Serious: Yes (Other)
  Sender: FDA-Public Use
  Company Number: GB-ACCORD-029828

PATIENT
  Age: 67 Year
  Sex: Male

DRUGS (4)
  1. QUININE [Concomitant]
     Active Substance: QUININE
     Indication: MUSCLE SPASMS
  2. SIMVASTATIN. [Suspect]
     Active Substance: SIMVASTATIN
     Indication: CARDIOVASCULAR DISORDER
  3. CLOPIDOGREL [Concomitant]
     Active Substance: CLOPIDOGREL BISULFATE
     Indication: CARDIOVASCULAR DISORDER
  4. PERINDOPRIL/PERINDOPRIL ERBUMINE [Concomitant]
     Indication: CARDIOVASCULAR DISORDER

REACTIONS (1)
  - Skin papilloma [Recovered/Resolved]
